FAERS Safety Report 5849064-9 (Version None)
Quarter: 2008Q3

REPORT INFORMATION
  Report Type: 
  Country: None (occurrence: None)
  Receive Date: 20080815
  Receipt Date: 20080806
  Transmission Date: 20090109
  Serious: Yes (Hospitalization)
  Sender: FDA-Public Use
  Company Number: B0532702A

PATIENT
  Age: 61 Year
  Sex: Female

DRUGS (1)
  1. AMOXICILLIN TRIHYDRATE [Suspect]
     Indication: PHARYNGOTONSILLITIS

REACTIONS (8)
  - BIOPSY LIVER ABNORMAL [None]
  - CHOLANGITIS [None]
  - CHOLESTASIS [None]
  - EOSINOPHILIA [None]
  - GENERALISED ERYTHEMA [None]
  - RASH PAPULAR [None]
  - SELF-MEDICATION [None]
  - SKIN LESION [None]
